FAERS Safety Report 6030944-9 (Version None)
Quarter: 2009Q1

REPORT INFORMATION
  Report Type: 
  Country: None (occurrence: None)
  Receive Date: 20090106
  Receipt Date: 20081224
  Transmission Date: 20090719
  Serious: Yes (Other)
  Sender: FDA-Public Use
  Company Number: CIP08002590

PATIENT
  Age: 73 Year
  Sex: Female

DRUGS (1)
  1. BENET (RISENDRONATE SODIUM) TABLET, 17.5 MG [Suspect]
     Indication: OSTEOPOROSIS
     Dosage: 17.5 MG ONCE WEEKLY, ORAL
     Route: 048

REACTIONS (5)
  - BONE DISORDER [None]
  - FALL [None]
  - FEMORAL NECK FRACTURE [None]
  - FEMUR FRACTURE [None]
  - PATHOLOGICAL FRACTURE [None]
